FAERS Safety Report 8070885-9 (Version None)
Quarter: 2011Q4

REPORT INFORMATION
  Report Type: 
  Country: None (occurrence: None)
  Receive Date: 20111221
  Receipt Date: 20110503
  Transmission Date: 20120403
  Serious: Yes (Other)
  Sender: FDA-Public Use
  Company Number: PHHY2010US68655

PATIENT
  Age: 82 Year
  Sex: Female
  Weight: 70.3 kg

DRUGS (4)
  1. IRON SUPLMENTS (NO INGREDIENTS/SUBSTANCES) [Concomitant]
  2. EXJADE [Suspect]
     Indication: NEOPLASM
     Dosage: 1000 MG, QD, ORAL, 500 MG, DAILY, ORAL
     Route: 048
     Dates: start: 20110316
  3. WARFARIN SODIUM [Concomitant]
  4. PREDNISONE TAB [Concomitant]

REACTIONS (8)
  - PLATELET COUNT [None]
  - HAEMOGLOBIN DECREASED [None]
  - ANAEMIA [None]
  - DIARRHOEA [None]
  - RASH [None]
  - VOMITING [None]
  - DYSPNOEA [None]
  - NAUSEA [None]
